FAERS Safety Report 4900542-6 (Version None)
Quarter: 2006Q1

REPORT INFORMATION
  Report Type: 
  Country: None (occurrence: None)
  Receive Date: 20060127
  Receipt Date: 20051111
  Transmission Date: 20060701
  Serious: Yes (Death)
  Sender: FDA-Public Use
  Company Number: CLOF-10158

PATIENT
  Age: 45 Year
  Sex: Female

DRUGS (27)
  1. CLOFARABINE [Suspect]
     Indication: ACUTE MYELOID LEUKAEMIA
     Dosage: 40 MG QD X 5 IV
     Route: 042
     Dates: start: 20050916, end: 20050920
  2. IDARUBICIN HCL [Suspect]
     Indication: ACUTE MYELOID LEUKAEMIA
     Dosage: 13.2 MG QD X 3 IV
     Route: 042
     Dates: start: 20050916, end: 20050918
  3. MORPHINE [Concomitant]
  4. LORAZEPAM [Concomitant]
  5. VANCOMYCIN [Concomitant]
  6. ALBUTEROL [Concomitant]
  7. ATROPINE [Concomitant]
  8. PANTOPRAZOLE [Concomitant]
  9. REGULAR INSULIN [Concomitant]
  10. ACETAMINOPHEN [Concomitant]
  11. IPRATROPIUM BROMIDE [Concomitant]
  12. DEXAMETHASONE TAB [Concomitant]
  13. HYDROCORTISONE [Concomitant]
  14. MEROPENEM [Concomitant]
  15. VORICONAZOLE [Concomitant]
  16. ONDANSETRON [Concomitant]
  17. MAGNESIUM SULFATE [Concomitant]
  18. POTASSIUM SULFATE [Concomitant]
  19. POTASSIUM PHOSPHATES [Concomitant]
  20. SODIUM PHOSPHATES [Concomitant]
  21. CIPROFLOXACIN HCL [Concomitant]
  22. METRONIDAZOLE [Concomitant]
  23. ACYCLOVIR [Concomitant]
  24. SARGRAMOSTIM [Concomitant]
  25. AMPHOTERICIN B [Concomitant]
  26. NEUPOGEN [Concomitant]
  27. METOPROLOL [Concomitant]

REACTIONS (5)
  - CEREBRAL INFARCTION [None]
  - GRANULOCYTE COUNT DECREASED [None]
  - NEUTROPHIL COUNT DECREASED [None]
  - PLATELET COUNT DECREASED [None]
  - THROMBOTIC STROKE [None]
